FAERS Safety Report 21236583 (Version 2)
Quarter: 2022Q4

REPORT INFORMATION
  Report Type: Spontaneous
  Country: US (occurrence: US)
  Receive Date: 20220822
  Receipt Date: 20221027
  Transmission Date: 20230112
  Serious: No
  Sender: FDA-Public Use
  Company Number: US-SA-SAC20220813000129

PATIENT
  Age: 49 Year
  Sex: Female

DRUGS (1)
  1. DUPIXENT [Suspect]
     Active Substance: DUPILUMAB
     Indication: Dermatitis atopic
     Dosage: 300 MG, QOW
     Route: 058
     Dates: start: 20220311

REACTIONS (4)
  - Skin swelling [Unknown]
  - Eye pain [Unknown]
  - Eye pruritus [Unknown]
  - Dry eye [Unknown]
